FAERS Safety Report 16601680 (Version 1)
Quarter: 2019Q3

REPORT INFORMATION
  Report Type: Spontaneous
  Country: JP (occurrence: JP)
  Receive Date: 20190719
  Receipt Date: 20190719
  Transmission Date: 20191004
  Serious: Yes (Death, Hospitalization, Other)
  Sender: FDA-Public Use
  Company Number: JP-GILEAD-2019-0418840

PATIENT
  Age: 8 Decade
  Sex: Male

DRUGS (1)
  1. VEMLIDY [Suspect]
     Active Substance: TENOFOVIR ALAFENAMIDE FUMARATE
     Indication: HEPATITIS B REACTIVATION
     Dosage: UNK
     Route: 048

REACTIONS (5)
  - Severe invasive streptococcal infection [Fatal]
  - Lymphoma [Recovering/Resolving]
  - Clostridium difficile colitis [Unknown]
  - Urinary tract infection [Unknown]
  - Pneumonia [Unknown]
